FAERS Safety Report 6601542-0 (Version None)
Quarter: 2010Q1

REPORT INFORMATION
  Report Type: 
  Country: None (occurrence: None)
  Receive Date: 20100217
  Receipt Date: 20100126
  Transmission Date: 20100710
  Serious: Yes (Other)
  Sender: FDA-Public Use
  Company Number: B0630883A

PATIENT
  Age: 20 Year
  Sex: Male

DRUGS (3)
  1. BUPROPION HYDROCHLORIDE [Suspect]
     Indication: SMOKING CESSATION THERAPY
  2. CANNABIS (FORMULATION UNKNOWN) (CANNABIS) [Suspect]
  3. METHYLENEDIOXYMETHAMPHET [Suspect]

REACTIONS (3)
  - ABNORMAL BEHAVIOUR [None]
  - CONDITION AGGRAVATED [None]
  - PSYCHOTIC DISORDER [None]
